FAERS Safety Report 5724251-9 (Version None)
Quarter: 2008Q2

REPORT INFORMATION
  Report Type: 
  Country: None (occurrence: None)
  Receive Date: 20080430
  Receipt Date: 20080418
  Transmission Date: 20081010
  Serious: Yes (Other)
  Sender: FDA-Public Use
  Company Number: BR-PFIZER INC-2007075352

PATIENT
  Sex: Female

DRUGS (2)
  1. FRONTAL [Suspect]
     Route: 048
  2. ETHANOL [Suspect]

REACTIONS (3)
  - HYPERSOMNIA [None]
  - MUTISM [None]
  - SUICIDE ATTEMPT [None]
